FAERS Safety Report 14293200 (Version 5)
Quarter: 2019Q1

REPORT INFORMATION
  Report Type: Report from Study
  Country: US (occurrence: US)
  Receive Date: 20171215
  Receipt Date: 20190221
  Transmission Date: 20190417
  Serious: Yes (Hospitalization, Other)
  Sender: FDA-Public Use
  Company Number: US-ACTELION-A-US2017-163756

PATIENT
  Age: 51 Year
  Sex: Male

DRUGS (1)
  1. OPSUMIT [Suspect]
     Active Substance: MACITENTAN
     Indication: PULMONARY ARTERIAL HYPERTENSION
     Dosage: 10 MG, QD
     Route: 048
     Dates: start: 20170104

REACTIONS (11)
  - Wound infection [Recovered/Resolved]
  - Wound secretion [Recovered/Resolved]
  - Liver transplant [Unknown]
  - Chronic hepatic failure [Recovered/Resolved]
  - Aspartate aminotransferase increased [Recovered/Resolved]
  - Mental status changes [Recovered/Resolved]
  - Insomnia [Recovered/Resolved]
  - Alanine aminotransferase increased [Recovered/Resolved]
  - Confusional state [Recovered/Resolved]
  - Liver function test increased [Recovered/Resolved]
  - Delirium [Recovered/Resolved]

NARRATIVE: CASE EVENT DATE: 20170926
